FAERS Safety Report 4657356-4 (Version None)
Quarter: 2005Q2

REPORT INFORMATION
  Report Type: 
  Country: None (occurrence: None)
  Receive Date: 20050411
  Receipt Date: 20030319
  Transmission Date: 20051028
  Serious: Yes (Other)
  Sender: FDA-Public Use
  Company Number: 5061

PATIENT
  Age: 33 Year
  Sex: Female

DRUGS (2)
  1. VINCRISTINE [Suspect]
     Indication: HODGKIN'S DISEASE
  2. METHOTREXATE [Concomitant]

REACTIONS (1)
  - NEUROTOXICITY [None]
